FAERS Safety Report 19778873 (Version 1)
Quarter: 2021Q3

REPORT INFORMATION
  Report Type: Spontaneous
  Country: FR (occurrence: FR)
  Receive Date: 20210902
  Receipt Date: 20210902
  Transmission Date: 20211014
  Serious: Yes (Other)
  Sender: FDA-Public Use
  Company Number: FR-ACCORD-237083

PATIENT
  Age: 30 Year
  Sex: Male

DRUGS (4)
  1. 3/4?METHYLENEDIOXY?N?METHYLAMPHETAMINE [Suspect]
     Active Substance: MIDOMAFETAMINE
  2. CANNABIS SATIVA [Suspect]
     Active Substance: CANNABIS SATIVA FLOWERING TOP
  3. CLONAZEPAM. [Suspect]
     Active Substance: CLONAZEPAM
  4. PREGABALIN. [Suspect]
     Active Substance: PREGABALIN

REACTIONS (3)
  - Loss of consciousness [Recovered/Resolved]
  - Drug abuse [Unknown]
  - Agitation [Unknown]
